FAERS Safety Report 5246964-8 (Version None)
Quarter: 2007Q1

REPORT INFORMATION
  Report Type: 
  Country: None (occurrence: None)
  Receive Date: 20070226
  Receipt Date: 20070222
  Transmission Date: 20070707
  Serious: Yes (Hospitalization)
  Sender: FDA-Public Use
  Company Number: US-GLAXOSMITHKLINE-A0640601A

PATIENT
  Age: 34 Year
  Sex: Female

DRUGS (4)
  1. PAXIL [Suspect]
     Route: 048
  2. WELLBUTRIN SR [Suspect]
     Route: 048
  3. BUPROPION HYDROCHLORIDE [Suspect]
     Route: 048
  4. KLONOPIN [Concomitant]

REACTIONS (3)
  - DEEP VEIN THROMBOSIS [None]
  - DEPRESSION [None]
  - DRUG EXPOSURE DURING PREGNANCY [None]
